FAERS Safety Report 4490473-0 (Version None)
Quarter: 2004Q4

REPORT INFORMATION
  Report Type: 
  Country: None (occurrence: None)
  Receive Date: 20041028
  Receipt Date: 20041018
  Transmission Date: 20050328
  Serious: Yes (Life-Threatening)
  Sender: FDA-Public Use
  Company Number: 2004240079GB

PATIENT
  Age: 1 Year
  Sex: Male
  Weight: 8 kg

DRUGS (19)
  1. DOXORUBICIN HCL [Suspect]
     Indication: RHABDOID TUMOUR OF THE KIDNEY
     Dosage: 21 MG, IV
     Route: 042
     Dates: start: 20040906, end: 20040906
  2. VINCRISTINE [Concomitant]
  3. TEICOPLANIN [Concomitant]
  4. OMEPRAZOLE [Concomitant]
  5. DOMPERIDONE (DOMPERIDONE) [Concomitant]
  6. FLUCONAZOLE [Concomitant]
  7. NYSTATIN [Concomitant]
  8. ACETAMINOPHEN [Concomitant]
  9. ONDANSETRON HCL [Concomitant]
  10. MEROPENEM (MEROPENEM) [Concomitant]
  11. GENTAMICIN [Concomitant]
  12. TAZOCIN (TAZOBACTAM SODIUM) [Concomitant]
  13. FLUCLOXACILLIN [Concomitant]
  14. G-CSF (GRANULOCYTE COLONY STIMULATING FACTOR) [Concomitant]
  15. CARBOPLATIN [Concomitant]
  16. ETOPOSIDE [Concomitant]
  17. CYCLOPHOSPHAMIDE [Concomitant]
  18. METOCLOPRAMIDE [Concomitant]
  19. AMBISOME [Concomitant]

REACTIONS (3)
  - ACUTE RESPIRATORY DISTRESS SYNDROME [None]
  - HYPERSENSITIVITY [None]
  - RECALL PHENOMENON [None]
